FAERS Safety Report 4586422-7 (Version None)
Quarter: 2005Q1

REPORT INFORMATION
  Report Type: 
  Country: None (occurrence: None)
  Receive Date: 20050218
  Receipt Date: 20050125
  Transmission Date: 20050727
  Serious: Yes (Hospitalization)
  Sender: FDA-Public Use
  Company Number: PHBS2005JP01498

PATIENT
  Age: 34 Year
  Sex: Male

DRUGS (2)
  1. LAMISIL [Suspect]
     Indication: NAIL TINEA
     Dosage: 125 MG, QD
     Route: 048
     Dates: start: 20041214, end: 20050124
  2. SELBEX [Concomitant]
     Indication: GASTRITIS
     Dosage: 150 MG/D
     Route: 048
     Dates: start: 20041214, end: 20050124

REACTIONS (7)
  - BLOOD ALKALINE PHOSPHATASE INCREASED [None]
  - BLOOD CREATINE PHOSPHOKINASE INCREASED [None]
  - BLOOD LACTATE DEHYDROGENASE INCREASED [None]
  - GENERAL PHYSICAL HEALTH DETERIORATION [None]
  - MYOGLOBIN URINE PRESENT [None]
  - RHABDOMYOLYSIS [None]
  - TRANSAMINASES INCREASED [None]
